FAERS Safety Report 4801581-6 (Version None)
Quarter: 2005Q4

REPORT INFORMATION
  Report Type: 
  Country: None (occurrence: None)
  Receive Date: 20051011
  Receipt Date: 20050927
  Transmission Date: 20060501
  Serious: Yes (Hospitalization, Other)
  Sender: FDA-Public Use
  Company Number: 2004097390

PATIENT
  Age: 61 Year
  Sex: Female
  Weight: 71.2147 kg

DRUGS (9)
  1. DETROL LA [Suspect]
     Indication: BLADDER DISORDER
     Dosage: 4 MG (4 MG, 1 IN 1 D), ORAL
     Route: 048
     Dates: start: 20040311, end: 20040313
  2. TRAZODONE (TRAZODONE) [Concomitant]
  3. LORAZEPAM [Concomitant]
  4. MOTRIN [Concomitant]
  5. DARVOCET-N 100 [Concomitant]
  6. PREMARIN [Concomitant]
  7. SOMA [Concomitant]
  8. ALPRAZOLAM [Concomitant]
  9. HYOSCINE HBR HYT [Concomitant]

REACTIONS (68)
  - ABDOMINAL DISTENSION [None]
  - AMNESIA [None]
  - ANION GAP DECREASED [None]
  - ANKLE FRACTURE [None]
  - ANXIETY [None]
  - ARTHRALGIA [None]
  - ARTHRITIS [None]
  - BACK PAIN [None]
  - BLADDER PROLAPSE [None]
  - BLOOD CHOLESTEROL INCREASED [None]
  - BLOOD URINE PRESENT [None]
  - BREAST MASS [None]
  - CHEST PAIN [None]
  - CYSTOCELE [None]
  - DEPRESSION [None]
  - DIVERTICULUM [None]
  - DIVERTICULUM INTESTINAL [None]
  - DYSPNOEA [None]
  - DYSSTASIA [None]
  - EOSINOPHIL PERCENTAGE DECREASED [None]
  - EXCORIATION [None]
  - FALL [None]
  - FATIGUE [None]
  - FIBROCYSTIC BREAST DISEASE [None]
  - GASTROOESOPHAGEAL REFLUX DISEASE [None]
  - GINGIVAL PAIN [None]
  - GLUCOSE URINE PRESENT [None]
  - HEADACHE [None]
  - HIATUS HERNIA [None]
  - INGUINAL HERNIA [None]
  - INSOMNIA [None]
  - INTERVERTEBRAL DISC DISORDER [None]
  - JOINT INJURY [None]
  - JOINT STIFFNESS [None]
  - JOINT SWELLING [None]
  - LOW DENSITY LIPOPROTEIN INCREASED [None]
  - LYMPHADENOPATHY [None]
  - LYMPHOCYTE PERCENTAGE DECREASED [None]
  - MEAN CELL VOLUME INCREASED [None]
  - MEAN PLATELET VOLUME INCREASED [None]
  - MONOCYTE PERCENTAGE DECREASED [None]
  - MUSCLE SPASMS [None]
  - MUSCULOSKELETAL STIFFNESS [None]
  - MYALGIA [None]
  - NAUSEA [None]
  - NECK PAIN [None]
  - NEUTROPHIL PERCENTAGE INCREASED [None]
  - NIGHT SWEATS [None]
  - NOCTURIA [None]
  - OCCULT BLOOD POSITIVE [None]
  - PAIN [None]
  - PALPITATIONS [None]
  - PHARYNGOLARYNGEAL PAIN [None]
  - PYREXIA [None]
  - RASH [None]
  - RECTOCELE [None]
  - REFUSAL OF TREATMENT BY PATIENT [None]
  - RHINORRHOEA [None]
  - SHOULDER PAIN [None]
  - STRESS INCONTINENCE [None]
  - TINNITUS [None]
  - TOOTH DISORDER [None]
  - URINARY INCONTINENCE [None]
  - URINARY RETENTION [None]
  - URINARY TRACT INFECTION [None]
  - URINE KETONE BODY PRESENT [None]
  - VAGINAL DISORDER [None]
  - WEIGHT DECREASED [None]
